FAERS Safety Report 23344757 (Version 1)
Quarter: 2023Q4

REPORT INFORMATION
  Report Type: Spontaneous
  Country: US (occurrence: US)
  Receive Date: 20231228
  Receipt Date: 20231228
  Transmission Date: 20240109
  Serious: Yes (Hospitalization, Other)
  Sender: FDA-Public Use
  Company Number: US-IPCA LABORATORIES LIMITED-IPC-2023-US-002311

PATIENT

DRUGS (2)
  1. AMLODIPINE [Suspect]
     Active Substance: AMLODIPINE BESYLATE
     Indication: Suicide attempt
     Dosage: 2000 MILLIGRAM
     Route: 048
  2. ATENOLOL [Suspect]
     Active Substance: ATENOLOL
     Indication: Suicide attempt
     Dosage: 350 MILLIGRAM
     Route: 048

REACTIONS (5)
  - Acute kidney injury [Recovered/Resolved]
  - Hypotension [Recovered/Resolved]
  - Blood creatinine increased [Recovered/Resolved]
  - Overdose [Unknown]
  - Suicide attempt [Unknown]
